FAERS Safety Report 5959973-8 (Version None)
Quarter: 2008Q4

REPORT INFORMATION
  Report Type: 
  Country: None (occurrence: None)
  Receive Date: 20081120
  Receipt Date: 20081110
  Transmission Date: 20090506
  Serious: Yes (Hospitalization, Other)
  Sender: FDA-Public Use
  Company Number: US-MERCK-0805USA03762

PATIENT
  Age: 60 Year
  Sex: Female
  Weight: 84 kg

DRUGS (7)
  1. FOSAMAX [Suspect]
     Indication: OSTEOPENIA
     Route: 048
     Dates: start: 20020901
  2. FOSAMAX [Suspect]
     Indication: OSTEOPOROSIS
     Route: 048
     Dates: start: 20020901
  3. [THERAPY UNSPECIFIED] [Concomitant]
     Indication: SLEEP DISORDER
     Route: 065
  4. ZOLOFT [Concomitant]
     Indication: MAJOR DEPRESSION
     Route: 065
  5. REMERON [Concomitant]
     Indication: SOCIAL PHOBIA
     Route: 065
  6. VALIUM [Concomitant]
     Route: 065
  7. DOXEPIN HYDROCHLORIDE [Concomitant]
     Route: 065

REACTIONS (30)
  - ADVERSE DRUG REACTION [None]
  - ANGINA PECTORIS [None]
  - ANXIETY [None]
  - ARTERIOSCLEROSIS CORONARY ARTERY [None]
  - BACK PAIN [None]
  - BRONCHITIS CHRONIC [None]
  - DEPRESSION [None]
  - DYSPHAGIA [None]
  - EMOTIONAL DISORDER [None]
  - FALL [None]
  - GAIT DISTURBANCE [None]
  - GASTROOESOPHAGEAL REFLUX DISEASE [None]
  - HYPERLIPIDAEMIA [None]
  - HYPERTENSION [None]
  - JOINT SPRAIN [None]
  - LUNG INJURY [None]
  - MACULAR DEGENERATION [None]
  - MAJOR DEPRESSION [None]
  - MYOCARDIAL INFARCTION [None]
  - OSTEONECROSIS [None]
  - PAIN [None]
  - PANIC ATTACK [None]
  - PERIODONTAL DISEASE [None]
  - PHYSICAL ASSAULT [None]
  - RIB FRACTURE [None]
  - SKIN CANCER [None]
  - TOOTH ABSCESS [None]
  - TOOTHACHE [None]
  - TREATMENT NONCOMPLIANCE [None]
  - WEIGHT DECREASED [None]
